FAERS Safety Report 16899073 (Version 1)
Quarter: 2019Q4

REPORT INFORMATION
  Report Type: Spontaneous
  Country: US (occurrence: US)
  Receive Date: 20191009
  Receipt Date: 20191009
  Transmission Date: 20200122
  Serious: Yes (Death, Other)
  Sender: FDA-Public Use
  Company Number: US-SA-2019SA274412

PATIENT
  Age: 30 Year
  Sex: Female

DRUGS (2)
  1. LEMTRADA [Suspect]
     Active Substance: ALEMTUZUMAB
     Indication: RELAPSING-REMITTING MULTIPLE SCLEROSIS
     Dosage: SECOND COURSE
  2. LEMTRADA [Suspect]
     Active Substance: ALEMTUZUMAB
     Dosage: FIRST COURSE

REACTIONS (5)
  - Intra-abdominal haemorrhage [Unknown]
  - Cerebral haemorrhage [Fatal]
  - Subarachnoid haemorrhage [Fatal]
  - Cerebellar haemorrhage [Fatal]
  - Immune thrombocytopenic purpura [Fatal]
